FAERS Safety Report 19456580 (Version 1)
Quarter: 2021Q2

REPORT INFORMATION
  Report Type: Spontaneous
  Country: US (occurrence: US)
  Receive Date: 20210624
  Receipt Date: 20210624
  Transmission Date: 20210717
  Serious: Yes (Death, Other)
  Sender: FDA-Public Use
  Company Number: None

PATIENT
  Sex: Male

DRUGS (1)
  1. LORAZEPAM 2MG/ML [Suspect]
     Active Substance: LORAZEPAM

REACTIONS (1)
  - Death [None]
